FAERS Safety Report 4976467-7 (Version None)
Quarter: 2006Q2

REPORT INFORMATION
  Report Type: 
  Country: None (occurrence: None)
  Receive Date: 20060412
  Receipt Date: 20060404
  Transmission Date: 20061013
  Serious: Yes (Hospitalization, Other)
  Sender: FDA-Public Use
  Company Number: 2006046968

PATIENT
  Age: 56 Year
  Sex: Female
  Weight: 99.7913 kg

DRUGS (7)
  1. NEURONTIN [Suspect]
     Indication: BACK PAIN
     Dosage: 900 MG (300 MG, 3 IN 1 D)
     Dates: start: 20050801
  2. LYRICA [Suspect]
     Indication: BACK PAIN
     Dosage: 150 MG (75 MG, 2 IN 1 D)
     Dates: start: 20050906
  3. BENICAR [Concomitant]
  4. NORVASC [Concomitant]
  5. CELEBREX [Concomitant]
  6. METFORMIN [Concomitant]
  7. AMARYL [Concomitant]

REACTIONS (10)
  - AMNESIA [None]
  - BALANCE DISORDER [None]
  - CERVICAL VERTEBRAL FRACTURE [None]
  - CONFUSIONAL STATE [None]
  - COORDINATION ABNORMAL [None]
  - ECONOMIC PROBLEM [None]
  - IMPAIRED WORK ABILITY [None]
  - JOINT INSTABILITY [None]
  - ROAD TRAFFIC ACCIDENT [None]
  - WEIGHT INCREASED [None]
